FAERS Safety Report 4625225-1 (Version None)
Quarter: 2005Q2

REPORT INFORMATION
  Report Type: 
  Country: None (occurrence: None)
  Receive Date: 20050401
  Receipt Date: 20050304
  Transmission Date: 20051028
  Serious: Yes (Hospitalization)
  Sender: FDA-Public Use
  Company Number: JP-ROCHE-398252

PATIENT
  Age: 50 Year
  Sex: Female

DRUGS (1)
  1. TAMIFLU [Suspect]
     Route: 048
     Dates: start: 20050218, end: 20050219

REACTIONS (2)
  - ENTEROCOLITIS HAEMORRHAGIC [None]
  - MELAENA [None]
